FAERS Safety Report 4530914-3 (Version None)
Quarter: 2004Q4

REPORT INFORMATION
  Report Type: 
  Country: None (occurrence: None)
  Receive Date: 20041217
  Receipt Date: 20030605
  Transmission Date: 20050328
  Serious: Yes (Hospitalization, Disabling, Other)
  Sender: FDA-Public Use
  Company Number: US-MERCK-0306USA00868

PATIENT
  Age: 48 Year
  Sex: Female

DRUGS (20)
  1. VIOXX [Suspect]
     Indication: MYALGIA
     Route: 048
     Dates: start: 19990816
  2. VIOXX [Suspect]
     Indication: PAIN
     Route: 048
     Dates: start: 19990816
  3. ZANTAC [Concomitant]
     Route: 065
  4. REGLAN [Concomitant]
     Route: 065
  5. DICYCLOMINE HYDROCHLORIDE [Concomitant]
     Route: 065
  6. PROCARDIA [Concomitant]
     Route: 065
  7. VICODIN ES [Concomitant]
     Route: 065
  8. VICODIN ES [Concomitant]
     Route: 065
  9. ARTHROTEC [Concomitant]
     Route: 065
  10. DITROPAN XL [Concomitant]
     Route: 065
  11. ADALAT [Concomitant]
     Route: 065
  12. QUININE [Concomitant]
     Route: 065
  13. CRIXIVAN [Concomitant]
     Route: 048
  14. CRIXIVAN [Concomitant]
     Route: 048
     Dates: start: 19990101
  15. COMBIVIR [Concomitant]
     Route: 065
     Dates: start: 19990101
  16. BACTRIM [Concomitant]
     Route: 065
  17. ALLEGRA [Concomitant]
     Route: 065
  18. DIFLUCAN [Concomitant]
     Route: 065
  19. DESYREL [Concomitant]
     Route: 065
  20. SKELAXIN [Concomitant]
     Route: 048
     Dates: start: 19990816

REACTIONS (41)
  - ABDOMINAL PAIN [None]
  - ADVERSE EVENT [None]
  - AMNESIA [None]
  - ANAEMIA [None]
  - ANXIETY [None]
  - BACK PAIN [None]
  - BLOOD PRESSURE INCREASED [None]
  - BRONCHITIS [None]
  - BURSITIS [None]
  - CEREBROVASCULAR ACCIDENT [None]
  - CHEST PAIN [None]
  - COLONIC POLYP [None]
  - CYST [None]
  - DEPRESSION [None]
  - DIFFICULTY IN WALKING [None]
  - DISORIENTATION [None]
  - DIVERTICULUM [None]
  - DYSARTHRIA [None]
  - DYSSTASIA [None]
  - FALL [None]
  - FRACTURE NONUNION [None]
  - GASTROENTERITIS [None]
  - GASTROINTESTINAL HAEMORRHAGE [None]
  - GENITAL PRURITUS FEMALE [None]
  - HEADACHE [None]
  - HIP FRACTURE [None]
  - HYPERSENSITIVITY [None]
  - IMPAIRED HEALING [None]
  - MACROCYTOSIS [None]
  - MUSCLE CRAMP [None]
  - NEUROPATHY [None]
  - PNEUMONIA [None]
  - POLYURIA [None]
  - SEPSIS [None]
  - SYNCOPE [None]
  - TACHYCARDIA [None]
  - TONGUE DISCOLOURATION [None]
  - TONGUE DISORDER [None]
  - URINARY INCONTINENCE [None]
  - VAGINAL BURNING SENSATION [None]
  - VISION BLURRED [None]
